FAERS Safety Report 9890035 (Version 2)
Quarter: 2014Q2

REPORT INFORMATION
  Report Type: Spontaneous
  Country: US (occurrence: US)
  Receive Date: 20140212
  Receipt Date: 20140404
  Transmission Date: 20141212
  Serious: No
  Sender: FDA-Public Use
  Company Number: US-BIOGENIDEC-2014BI010975

PATIENT
  Age: 42 Year
  Sex: Female

DRUGS (11)
  1. TECFIDERA [Suspect]
     Indication: MULTIPLE SCLEROSIS
  2. TECFIDERA [Suspect]
     Indication: MULTIPLE SCLEROSIS
     Route: 048
     Dates: start: 201304
  3. AMANTADINE [Concomitant]
  4. AMPYRA [Concomitant]
  5. ANTIVERT [Concomitant]
  6. BUTALB-ACETAMINOPH-CAF [Concomitant]
  7. CELEXA [Concomitant]
  8. DIAZEPAM [Concomitant]
  9. ECOTRIN 325 [Concomitant]
  10. TRAZODONE HCL [Concomitant]
  11. VITAMIN D [Concomitant]

REACTIONS (2)
  - Alopecia [Not Recovered/Not Resolved]
  - Salivary hypersecretion [Not Recovered/Not Resolved]
